FAERS Safety Report 18689676 (Version 1)
Quarter: 2020Q4

REPORT INFORMATION
  Report Type: Spontaneous
  Country: CA (occurrence: CA)
  Receive Date: 20201231
  Receipt Date: 20201231
  Transmission Date: 20210114
  Serious: Yes (Other)
  Sender: FDA-Public Use
  Company Number: CA-JAZZ-2020-CA-017741

PATIENT
  Age: 3 Month
  Sex: Male

DRUGS (8)
  1. ASPARAGINASE [Suspect]
     Active Substance: ASPARAGINASE
     Indication: CHLOROMA
     Dosage: UNKNOWN DOSE
     Route: 030
  2. CYTARABINE. [Suspect]
     Active Substance: CYTARABINE
     Indication: CHLOROMA
     Dosage: 2 EVERY 1 WEEKS
     Route: 037
  3. METHOTREXATE. [Suspect]
     Active Substance: METHOTREXATE
     Indication: BRAIN SARCOMA
     Dosage: UNKNOWN DOSE
  4. ETOPOSIDE. [Suspect]
     Active Substance: ETOPOSIDE
     Indication: CHLOROMA
     Dosage: UNKNOWN DOSE
  5. CYTARABINE. [Suspect]
     Active Substance: CYTARABINE
     Indication: BRAIN SARCOMA
  6. DAUNORUBICIN HYDROCHLORIDE. [Suspect]
     Active Substance: DAUNORUBICIN HYDROCHLORIDE
     Indication: CHLOROMA
     Route: 042
  7. FLUDARABINE [Suspect]
     Active Substance: FLUDARABINE PHOSPHATE
     Indication: BRAIN SARCOMA
     Dosage: UNKNOWN DOSE
  8. HYDROCORTISONE SODIUM SUCCINATE [Suspect]
     Active Substance: HYDROCORTISONE SODIUM SUCCINATE
     Indication: BRAIN SARCOMA
     Dosage: 1 GRAM PER VIAL

REACTIONS (8)
  - Cerebellar tumour [Unknown]
  - Septic shock [Unknown]
  - Infection [Unknown]
  - General physical health deterioration [Unknown]
  - Pyrexia [Unknown]
  - Brain sarcoma [Unknown]
  - Hydrocephalus [Unknown]
  - Leukaemia recurrent [Unknown]
